FAERS Safety Report 16159130 (Version 2)
Quarter: 2019Q2

REPORT INFORMATION
  Report Type: Spontaneous
  Country: GB (occurrence: GB)
  Receive Date: 20190404
  Receipt Date: 20190603
  Transmission Date: 20190711
  Serious: Yes (Hospitalization, Other)
  Sender: FDA-Public Use
  Company Number: GB-BAYER-2019-061811

PATIENT
  Sex: Male

DRUGS (1)
  1. BETAFERON [Suspect]
     Active Substance: INTERFERON BETA-1B
     Indication: MULTIPLE SCLEROSIS
     Dosage: 8 MIU, QOD
     Route: 058
     Dates: start: 20080207

REACTIONS (16)
  - Mastication disorder [None]
  - Product dose omission [None]
  - Blindness [None]
  - Feelings of worthlessness [None]
  - Urinary tract operation [None]
  - Adverse event [Unknown]
  - Blood disorder [None]
  - Multiple sclerosis relapse [None]
  - Mobility decreased [None]
  - Feeding disorder [None]
  - Ill-defined disorder [None]
  - Renal surgery [None]
  - Muscle spasms [None]
  - Dysphagia [None]
  - Optic neuritis [None]
  - Panic reaction [None]
